FAERS Safety Report 4838046-1 (Version None)
Quarter: 2005Q4

REPORT INFORMATION
  Report Type: 
  Country: None (occurrence: None)
  Receive Date: 20051128
  Receipt Date: 20040628
  Transmission Date: 20060501
  Serious: Yes (Hospitalization)
  Sender: FDA-Public Use
  Company Number: 200412232JP

PATIENT
  Age: 59 Year
  Sex: Male
  Weight: 53.7 kg

DRUGS (17)
  1. ARAVA [Suspect]
     Indication: RHEUMATOID ARTHRITIS
     Route: 048
     Dates: start: 20031031, end: 20031102
  2. ARAVA [Suspect]
     Route: 048
     Dates: start: 20031103, end: 20040218
  3. ARAVA [Suspect]
     Route: 048
     Dates: start: 20040303, end: 20040414
  4. ARAVA [Suspect]
     Route: 048
     Dates: start: 20040415, end: 20040514
  5. ARAVA [Suspect]
     Route: 048
     Dates: start: 20040515, end: 20040521
  6. MEDROL [Concomitant]
     Indication: RHEUMATOID ARTHRITIS
     Route: 048
     Dates: end: 20031223
  7. MEDROL [Concomitant]
     Route: 048
     Dates: start: 20031224
  8. RHEUMATREX [Concomitant]
     Indication: RHEUMATOID ARTHRITIS
     Dosage: DOSE: 8MG/WEEK
     Route: 048
     Dates: end: 20031030
  9. ALEVIATIN [Concomitant]
     Indication: EPILEPSY
     Route: 048
  10. CYTOTEC [Concomitant]
     Indication: ULCER
     Route: 048
  11. DEPAKENE [Concomitant]
     Indication: EPILEPSY
     Route: 048
  12. PHENOBAL [Concomitant]
     Indication: EPILEPSY
     Route: 048
  13. MARZULENE S [Concomitant]
     Indication: GASTRITIS
     Route: 048
  14. MUCOSOLVAN [Concomitant]
     Indication: BRONCHITIS CHRONIC
     Route: 048
  15. VOLTAREN [Concomitant]
     Indication: RHEUMATOID ARTHRITIS
     Route: 054
  16. LASIX [Concomitant]
     Indication: PLEURAL EFFUSION
     Route: 048
  17. LOPEMIN [Concomitant]
     Indication: DIARRHOEA
     Route: 048
     Dates: start: 20040319

REACTIONS (6)
  - ANOREXIA [None]
  - DIARRHOEA [None]
  - HYPOPROTEINAEMIA [None]
  - INFECTION [None]
  - NASOPHARYNGITIS [None]
  - PLEURAL EFFUSION [None]
